FAERS Safety Report 5510205-4 (Version None)
Quarter: 2007Q4

REPORT INFORMATION
  Report Type: 
  Country: None (occurrence: None)
  Receive Date: 20071108
  Receipt Date: 20071029
  Transmission Date: 20080405
  Serious: Yes (Other)
  Sender: FDA-Public Use
  Company Number: US-ELI_LILLY_AND_COMPANY-US200710004165

PATIENT
  Sex: Female
  Weight: 94.331 kg

DRUGS (12)
  1. FORTEO [Suspect]
     Indication: OSTEOPOROSIS
     Dosage: 20 UG, DAILY (1/D)
     Dates: start: 20070701
  2. COUMADIN [Concomitant]
  3. RYTHMOL [Concomitant]
  4. LISINOPRIL [Concomitant]
  5. LIPITOR [Concomitant]
  6. CLARITIN [Concomitant]
     Indication: HYPERSENSITIVITY
     Dosage: UNK, AS NEEDED
  7. GLUCOSAMINE [Concomitant]
  8. FISH OIL [Concomitant]
  9. CENTRUM SILVER [Concomitant]
  10. CALTRATE [Concomitant]
  11. LIPOFLAVONOID [Concomitant]
  12. VITAMIN D AND ANGELIQ [Concomitant]

REACTIONS (2)
  - BLOOD UREA INCREASED [None]
  - RENAL IMPAIRMENT [None]
